FAERS Safety Report 8950447 (Version 1)
Quarter: 2012Q4

REPORT INFORMATION
  Report Type: 
  Country: US (occurrence: US)
  Receive Date: 20121207
  Receipt Date: 20121207
  Transmission Date: 20130627
  Serious: Yes (Hospitalization, Other)
  Sender: FDA-Public Use
  Company Number: US-BAYER-2012-126126

PATIENT
  Sex: Female

DRUGS (1)
  1. STIVARGA [Suspect]
     Indication: COLORECTAL CANCER
     Dosage: 160 mg, UNK
     Route: 048
     Dates: start: 201211, end: 201211

REACTIONS (2)
  - Palmar-plantar erythrodysaesthesia syndrome [None]
  - Urinary retention [None]
